FAERS Safety Report 6378470-1 (Version None)
Quarter: 2009Q3

REPORT INFORMATION
  Report Type: 
  Country: None (occurrence: None)
  Receive Date: 20090928
  Receipt Date: 20090921
  Transmission Date: 20100115
  Serious: Yes (Disabling)
  Sender: FDA-Public Use
  Company Number: CH-BIOGENIDEC-2009BI027877

PATIENT
  Age: 49 Year
  Sex: Female

DRUGS (1)
  1. TYSABRI [Suspect]
     Indication: RELAPSING-REMITTING MULTIPLE SCLEROSIS
     Route: 042
     Dates: start: 20080129, end: 20090811

REACTIONS (3)
  - HEMIPARESIS [None]
  - HERPES ZOSTER [None]
  - MULTIPLE SCLEROSIS [None]
